FAERS Safety Report 8889587 (Version 1)
Quarter: 2012Q4

REPORT INFORMATION
  Report Type: Spontaneous
  Country: US (occurrence: None)
  Receive Date: 20121105
  Receipt Date: 20121105
  Transmission Date: 20130627
  Serious: Yes (Other)
  Sender: FDA-Public Use
  Company Number: None

PATIENT
  Age: 68 Year
  Sex: Female
  Weight: 72.58 kg

DRUGS (6)
  1. LIVALO (PITAVASTATIN) TABLETS 2 MG [Suspect]
     Indication: CHOLESTEROL HIGH
     Dosage: 1/2 tablet 1Xdaily orally
     Route: 048
     Dates: start: 20121003
  2. LIVALO (PITAVASTATIN) TABLETS 2 MG [Suspect]
     Indication: CHOLESTEROL HIGH
     Dosage: 1/2 tablet 1Xdaily orally
     Route: 048
     Dates: start: 20121005
  3. LIVALO (PITAVASTATIN) TABLETS 2 MG [Suspect]
     Indication: CHOLESTEROL HIGH
     Dosage: 1/2 tablet 1Xdaily orally
     Route: 048
     Dates: start: 20121007
  4. LIVALO (PITAVASTATIN) TABLETS 2 MG [Suspect]
     Indication: CHOLESTEROL HIGH
     Dosage: 1/2 tablet 1Xdaily orally
     Route: 048
     Dates: start: 20121008
  5. LIVALO (PITAVASTATIN) TABLETS 2 MG [Suspect]
     Indication: CHOLESTEROL HIGH
     Dosage: 1/2 tablet 1Xdaily orally
     Route: 048
     Dates: start: 20121010
  6. LIVALO (PITAVASTATIN) TABLETS 2 MG [Suspect]
     Indication: CHOLESTEROL HIGH
     Dosage: 1/2 tablet 1Xdaily orally
     Route: 048
     Dates: start: 20121011

REACTIONS (7)
  - Abdominal pain upper [None]
  - Vomiting [None]
  - Diarrhoea [None]
  - Oral discomfort [None]
  - Paraesthesia oral [None]
  - Product odour abnormal [None]
  - Product taste abnormal [None]
